FAERS Safety Report 14614873 (Version 1)
Quarter: 2018Q1

REPORT INFORMATION
  Report Type: Spontaneous
  Country: US (occurrence: US)
  Receive Date: 20180308
  Receipt Date: 20180308
  Transmission Date: 20180509
  Serious: No
  Sender: FDA-Public Use
  Company Number: US-TAIHO ONCOLOGY INC-EU-2018-00341

PATIENT
  Sex: Male
  Weight: 68.24 kg

DRUGS (1)
  1. LONSURF [Suspect]
     Active Substance: TIPIRACIL HYDROCHLORIDE\TRIFLURIDINE
     Indication: RECTAL CANCER
     Dosage: CYCLE 1
     Route: 048
     Dates: start: 20180129

REACTIONS (2)
  - Myalgia [Unknown]
  - Fatigue [Unknown]

NARRATIVE: CASE EVENT DATE: 2018
